FAERS Safety Report 10075817 (Version 1)
Quarter: 2014Q2

REPORT INFORMATION
  Report Type: Spontaneous
  Country: SG (occurrence: SG)
  Receive Date: 20140414
  Receipt Date: 20140414
  Transmission Date: 20141212
  Serious: Yes (Other)
  Sender: FDA-Public Use
  Company Number: SG-009507513-1404SGP006093

PATIENT
  Age: 56 Year
  Sex: Male

DRUGS (1)
  1. ZOCOR TAB 10 MG [Suspect]
     Dosage: UNK
     Route: 048

REACTIONS (2)
  - Musculoskeletal stiffness [Unknown]
  - Muscular weakness [Unknown]
